FAERS Safety Report 4944565-X (Version None)
Quarter: 2006Q1

REPORT INFORMATION
  Report Type: 
  Country: None (occurrence: None)
  Receive Date: 20060117
  Receipt Date: 20051109
  Transmission Date: 20060701
  Serious: Yes (Other)
  Sender: FDA-Public Use
  Company Number: 2005154832

PATIENT
  Sex: Male
  Weight: 74.8435 kg

DRUGS (2)
  1. MACUGEN [Suspect]
     Indication: MACULAR DEGENERATION
     Dosage: 1 IN 6 WK INTRAVITREOUS
     Dates: start: 20050101
  2. VITAMINS [Concomitant]

REACTIONS (4)
  - ARTHROPATHY [None]
  - BLOOD PRESSURE INCREASED [None]
  - EYE SWELLING [None]
  - EYELID IRRITATION [None]
